FAERS Safety Report 6038008-5 (Version None)
Quarter: 2009Q1

REPORT INFORMATION
  Report Type: 
  Country: None (occurrence: None)
  Receive Date: 20090113
  Receipt Date: 20090113
  Transmission Date: 20090719
  Serious: Yes (Death)
  Sender: FDA-Public Use
  Company Number: None

PATIENT
  Age: 36 Year
  Sex: Male
  Weight: 95.2554 kg

DRUGS (1)
  1. CYMBALTA [Suspect]
     Dates: start: 20081101, end: 20081231

REACTIONS (1)
  - COMPLETED SUICIDE [None]
